FAERS Safety Report 5473566-0 (Version None)
Quarter: 2007Q4

REPORT INFORMATION
  Report Type: 
  Country: None (occurrence: None)
  Receive Date: 20071001
  Receipt Date: 20070509
  Transmission Date: 20080405
  Serious: No
  Sender: FDA-Public Use
  Company Number: US-ASTRAZENECA-2007UW11246

PATIENT
  Age: 57 Year
  Sex: Female

DRUGS (4)
  1. ARIMIDEX [Suspect]
  2. EFFEXOR [Concomitant]
  3. ALEVE [Concomitant]
  4. FEMARA [Concomitant]

REACTIONS (4)
  - ARTHRALGIA [None]
  - HEADACHE [None]
  - OEDEMA PERIPHERAL [None]
  - SWOLLEN TONGUE [None]
